FAERS Safety Report 6253115-X (Version None)
Quarter: 2009Q2

REPORT INFORMATION
  Report Type: 
  Country: None (occurrence: None)
  Receive Date: 20090629
  Receipt Date: 20090624
  Transmission Date: 20091009
  Serious: Yes (Death, Hospitalization)
  Sender: FDA-Public Use
  Company Number: 2009SP006142

PATIENT
  Age: 86 Year
  Sex: Male

DRUGS (10)
  1. ALBUTEROL SULFATE [Suspect]
  2. PROVENTIL-HFA [Suspect]
     Dosage: 2 DF; Q4H; PO
     Route: 048
     Dates: end: 20090210
  3. NASONEX [Suspect]
     Indication: DRUG USE FOR UNKNOWN INDICATION
     Dosage: 2 DF; QAM; NAS
     Route: 045
     Dates: end: 20090210
  4. ASMANEX TWISTHALER [Suspect]
     Indication: DRUG USE FOR UNKNOWN INDICATION
     Dosage: 1 DF; QD; PO
     Route: 048
     Dates: end: 20090210
  5. SINGULAIR [Concomitant]
  6. ATENOLOL [Concomitant]
  7. ZOCOR [Concomitant]
  8. ZOLOFT [Concomitant]
  9. COUMADIN [Concomitant]
  10. PROAMATINE [Concomitant]

REACTIONS (1)
  - CEREBROVASCULAR ACCIDENT [None]
